FAERS Safety Report 9102466 (Version 1)
Quarter: 2013Q1

REPORT INFORMATION
  Report Type: Spontaneous
  Country: US (occurrence: US)
  Receive Date: 20130219
  Receipt Date: 20130219
  Transmission Date: 20140127
  Serious: Yes (Hospitalization)
  Sender: FDA-Public Use
  Company Number: US-RB-044944-12

PATIENT
  Age: 41 Year
  Sex: Male

DRUGS (5)
  1. SUBOXONE FILM [Suspect]
     Indication: DRUG DEPENDENCE
     Dosage: SUBOXONE FILM
     Route: 060
     Dates: start: 2010, end: 201104
  2. SUBOXONE FILM [Suspect]
     Dosage: SUBOXONE FILM; TITRATION PERIOD  WITH UNKNOWN LOWERING DOSAGES
     Route: 060
     Dates: start: 201104, end: 2011
  3. SUBOXONE FILM [Suspect]
     Dosage: SUBOXONE FILM; LOWERED AND ONGOING AT UNKNOWN DAILY DOSAGE
     Route: 060
     Dates: start: 2011
  4. SUBOXONE TABLET [Suspect]
     Route: 060
     Dates: start: 200706
  5. SUBOXONE TABLET [Suspect]
     Indication: DRUG DEPENDENCE
     Route: 060
     Dates: start: 200708

REACTIONS (7)
  - Vomiting [Recovered/Resolved]
  - Asthenia [Recovered/Resolved]
  - Decreased appetite [Recovered/Resolved]
  - Hospitalisation [Recovered/Resolved]
  - Wrong technique in drug usage process [Recovered/Resolved]
  - Lethargy [Recovered/Resolved]
  - Intentional overdose [Recovered/Resolved]
